FAERS Safety Report 15124926 (Version 1)
Quarter: 2018Q3

REPORT INFORMATION
  Report Type: Spontaneous
  Country: US (occurrence: US)
  Receive Date: 20180710
  Receipt Date: 20180710
  Transmission Date: 20181010
  Serious: No
  Sender: FDA-Public Use
  Company Number: US-ACCORD-067460

PATIENT
  Age: 75 Year
  Sex: Female
  Weight: 81.19 kg

DRUGS (1)
  1. SPIRONOLACTONE. [Suspect]
     Active Substance: SPIRONOLACTONE
     Indication: PRODUCT USED FOR UNKNOWN INDICATION
     Dosage: STRENGTH: 25 MG

REACTIONS (4)
  - Gastrointestinal disorder [Unknown]
  - Product odour abnormal [Unknown]
  - Product substitution issue [Unknown]
  - Product taste abnormal [Unknown]
